FAERS Safety Report 15656530 (Version 2)
Quarter: 2020Q3

REPORT INFORMATION
  Report Type: Spontaneous
  Country: US (occurrence: US)
  Receive Date: 20181126
  Receipt Date: 20200817
  Transmission Date: 20201102
  Serious: Yes (Other)
  Sender: FDA-Public Use
  Company Number: US-GILEAD-2018-0376042

PATIENT
  Age: 56 Year
  Sex: Female
  Weight: 69.84 kg

DRUGS (26)
  1. FLUTICASONE PROPIONATE. [Concomitant]
     Active Substance: FLUTICASONE PROPIONATE
  2. PSYLLIUM HUSK POWDER [Concomitant]
  3. TRAZODONE [Concomitant]
     Active Substance: TRAZODONE HYDROCHLORIDE
  4. LISINOPRIL. [Concomitant]
     Active Substance: LISINOPRIL
  5. FLUOXETINE HCL [Concomitant]
     Active Substance: FLUOXETINE HYDROCHLORIDE
  6. NALTREXONE [Concomitant]
     Active Substance: NALTREXONE
  7. THIAMINE HCL [Concomitant]
     Active Substance: THIAMINE HYDROCHLORIDE
  8. BUPROPION. [Concomitant]
     Active Substance: BUPROPION
  9. GABAPENTIN. [Concomitant]
     Active Substance: GABAPENTIN
  10. CARBOXYMETHYLCELLULOSE [Concomitant]
     Active Substance: CARBOXYMETHYLCELLULOSE
  11. LAMOTRIGINE. [Concomitant]
     Active Substance: LAMOTRIGINE
  12. NAPROXEN. [Concomitant]
     Active Substance: NAPROXEN
  13. DOCUSATE SODIUM. [Concomitant]
     Active Substance: DOCUSATE SODIUM
  14. NICOTINE. [Concomitant]
     Active Substance: NICOTINE
  15. ALBUTEROL [SALBUTAMOL] [Concomitant]
     Active Substance: ALBUTEROL
  16. MAGNESIUM [Concomitant]
     Active Substance: MAGNESIUM
  17. RANITIDINE. [Concomitant]
     Active Substance: RANITIDINE
  18. SENNOSIDES. [Concomitant]
     Active Substance: SENNOSIDES
  19. ZOLPIDEM TARTRATE. [Concomitant]
     Active Substance: ZOLPIDEM TARTRATE
  20. STRIBILD [Suspect]
     Active Substance: COBICISTAT\ELVITEGRAVIR\EMTRICITABINE\TENOFOVIR DISOPROXIL FUMARATE
     Indication: HIV INFECTION
     Dosage: UNK
     Route: 048
     Dates: start: 20170201, end: 201808
  21. MELATONIN [Concomitant]
     Active Substance: MELATONIN
  22. LURASIDONE [Concomitant]
     Active Substance: LURASIDONE
  23. TRIUMEQ [Concomitant]
     Active Substance: ABACAVIR SULFATE\DOLUTEGRAVIR SODIUM\LAMIVUDINE
  24. BACLOFEN. [Concomitant]
     Active Substance: BACLOFEN
  25. LORATADINE. [Concomitant]
     Active Substance: LORATADINE
  26. POLYETHYLENE GLYCOL [MACROGOL] [Concomitant]
     Active Substance: POLYETHYLENE GLYCOLS

REACTIONS (8)
  - Osteoporosis [Not Recovered/Not Resolved]
  - Spinal fracture [Unknown]
  - Anhedonia [Unknown]
  - Pain [Unknown]
  - Anxiety [Unknown]
  - Emotional distress [Unknown]
  - Bone density decreased [Unknown]
  - Economic problem [Unknown]

NARRATIVE: CASE EVENT DATE: 201703
